FAERS Safety Report 12065743 (Version 1)
Quarter: 2016Q1

REPORT INFORMATION
  Report Type: Spontaneous
  Country: US (occurrence: None)
  Receive Date: 20160210
  Receipt Date: 20160210
  Transmission Date: 20160526
  Serious: No
  Sender: FDA-Public Use
  Company Number: None

PATIENT
  Age: 67 Year
  Weight: 74.84 kg

DRUGS (1)
  1. IMIQUIMOD. [Suspect]
     Active Substance: IMIQUIMOD
     Indication: MALIGNANT MELANOMA
     Dosage: 5 PERCENT 1 TIME A DAY ON THE ARM
     Route: 061
     Dates: start: 20150127, end: 20150225

REACTIONS (3)
  - Pain of skin [None]
  - Vein disorder [None]
  - Vein rupture [None]

NARRATIVE: CASE EVENT DATE: 20150227
